FAERS Safety Report 9737513 (Version 2)
Quarter: 2014Q1

REPORT INFORMATION
  Report Type: Report from Study
  Country: IT (occurrence: IT)
  Receive Date: 20131207
  Receipt Date: 20140121
  Transmission Date: 20141002
  Serious: Yes (Hospitalization)
  Sender: FDA-Public Use
  Company Number: IT-AMGEN-ITACT2013085063

PATIENT
  Age: 51 Year
  Sex: Male

DRUGS (7)
  1. PANITUMUMAB [Suspect]
     Indication: GASTRIC CANCER
     Dosage: 6 MUG, Q2WK
     Route: 042
     Dates: start: 20131113, end: 20131113
  2. IRAZEM [Concomitant]
     Indication: INSOMNIA
     Dosage: 10 MUG, UNK
  3. FLEBOCORTID [Concomitant]
     Dosage: 500 MUG, UNK
  4. LOBIDIUR [Concomitant]
     Indication: HYPERTENSION
     Dosage: 1 UNK, UNK
  5. OMEPRAZOLE [Concomitant]
     Indication: GASTRIC DISORDER
     Dosage: 20 MUG, UNK
  6. URBASON                            /00049601/ [Concomitant]
  7. BRONCOVALEAS                       /00139501/ [Concomitant]

REACTIONS (1)
  - Drug hypersensitivity [Recovered/Resolved]
